FAERS Safety Report 6554920-2 (Version None)
Quarter: 2010Q1

REPORT INFORMATION
  Report Type: 
  Country: None (occurrence: None)
  Receive Date: 20100126
  Receipt Date: 20100111
  Transmission Date: 20100710
  Serious: Yes (Life-Threatening, Hospitalization)
  Sender: FDA-Public Use
  Company Number: 002552

PATIENT
  Sex: Female

DRUGS (5)
  1. PROSTAVASIN /00501501/ (PROSTAVASINE VIALS 20 MICROGRAMS) [Suspect]
     Dosage: (40 MCG  INTRAVENOUS (NOT OTHERWISE SPECIFIED))
     Route: 042
     Dates: start: 19940817, end: 19940821
  2. NOVODIGAL /00545901/ [Concomitant]
  3. XANEF-COR [Concomitant]
  4. TIAPRIDEX [Concomitant]
  5. CORANGIN /00586303/ [Concomitant]

REACTIONS (16)
  - AGITATION [None]
  - CEREBROVASCULAR DISORDER [None]
  - COLD SWEAT [None]
  - CONFUSIONAL STATE [None]
  - EXCESSIVE EYE BLINKING [None]
  - FEAR [None]
  - HYPERKINESIA [None]
  - MOVEMENT DISORDER [None]
  - MULTIPLE FRACTURES [None]
  - NERVOUS SYSTEM DISORDER [None]
  - PAIN IN EXTREMITY [None]
  - PALLOR [None]
  - PANIC REACTION [None]
  - SELF INJURIOUS BEHAVIOUR [None]
  - TREMOR [None]
  - UNEVALUABLE EVENT [None]
